FAERS Safety Report 8451863-4 (Version None)
Quarter: 2012Q2

REPORT INFORMATION
  Report Type: 
  Country: None (occurrence: None)
  Receive Date: 20120620
  Receipt Date: 20120322
  Transmission Date: 20120825
  Serious: No
  Sender: FDA-Public Use
  Company Number: US-VERTEX PHARMACEUTICALS INC.-AE-2012-004147

PATIENT
  Sex: Female

DRUGS (3)
  1. POLYETHYLENE GLYCOL [Concomitant]
     Indication: HEPATITIS C
     Dates: start: 20120301
  2. RIBAVIRIN [Concomitant]
     Indication: HEPATITIS C
     Dates: start: 20120301
  3. INCIVEK [Suspect]
     Indication: HEPATITIS C
     Route: 048
     Dates: start: 20120301

REACTIONS (5)
  - ABDOMINAL PAIN UPPER [None]
  - VOMITING [None]
  - FAECES DISCOLOURED [None]
  - NAUSEA [None]
  - CHOLELITHIASIS [None]
